FAERS Safety Report 10464071 (Version 1)
Quarter: 2014Q3

REPORT INFORMATION
  Report Type: Spontaneous
  Country: US (occurrence: US)
  Receive Date: 20140919
  Receipt Date: 20140919
  Transmission Date: 20150326
  Serious: Yes (Other)
  Sender: FDA-Public Use
  Company Number: US-AMGEN-USASP2014070452

PATIENT
  Age: 88 Year
  Sex: Female

DRUGS (8)
  1. VIACTIV                            /00751501/ [Concomitant]
     Dosage: UNK UNK, QD
     Dates: start: 201407
  2. ASPIRIN                            /00002701/ [Concomitant]
     Active Substance: ASPIRIN
     Dosage: UNK UNK, QD
  3. PLAVIX [Concomitant]
     Active Substance: CLOPIDOGREL BISULFATE
     Dosage: UNK UNK, QD
  4. TRIAMTERENE. [Concomitant]
     Active Substance: TRIAMTERENE
     Dosage: UNK UNK, QD
  5. GLIMEPIRIDE. [Concomitant]
     Active Substance: GLIMEPIRIDE
     Dosage: UNK UNK, QD
  6. OMEGA 3                            /01333901/ [Concomitant]
     Dosage: UNK UNK, QD
  7. PROLIA [Suspect]
     Active Substance: DENOSUMAB
     Indication: OSTEOPOROSIS
     Dosage: UNK
     Route: 065
  8. MULTIVITAMIN                       /00097801/ [Concomitant]
     Active Substance: VITAMINS
     Dosage: UNK UNK, QD

REACTIONS (10)
  - Low density lipoprotein increased [Unknown]
  - Musculoskeletal disorder [Unknown]
  - High density lipoprotein decreased [Unknown]
  - Blood triglycerides abnormal [Unknown]
  - Injury [Unknown]
  - Stress [Unknown]
  - Fall [Unknown]
  - Arthropathy [Unknown]
  - Diabetes mellitus [Unknown]
  - Blood creatinine abnormal [Unknown]
